FAERS Safety Report 22156983 (Version 2)
Quarter: 2023Q2

REPORT INFORMATION
  Report Type: Spontaneous
  Country: ZA (occurrence: ZA)
  Receive Date: 20230330
  Receipt Date: 20230406
  Transmission Date: 20230722
  Serious: Yes (Other)
  Sender: FDA-Public Use
  Company Number: ZA-PFIZER INC-PV202300057900

PATIENT
  Age: 55 Year
  Sex: Male

DRUGS (4)
  1. METHOTREXATE SODIUM [Suspect]
     Active Substance: METHOTREXATE SODIUM
     Indication: Psoriatic arthropathy
     Dosage: 15 MG, WEEKLY
     Route: 065
     Dates: start: 202001
  2. CELEBREX [Suspect]
     Active Substance: CELECOXIB
     Indication: Psoriatic arthropathy
     Dosage: 200 MG, 2X/DAY
     Route: 048
     Dates: start: 202001
  3. ARAVA [Suspect]
     Active Substance: LEFLUNOMIDE
     Indication: Psoriatic arthropathy
     Dosage: 20 MG, 1X/DAY
     Dates: start: 202010
  4. STELARA [Suspect]
     Active Substance: USTEKINUMAB
     Indication: Psoriatic arthropathy
     Dosage: 45 MG (WEEK 0, WEEK 4 AND WEEK 12)
     Route: 065
     Dates: start: 202010

REACTIONS (5)
  - Immunodeficiency [Unknown]
  - Psoriatic arthropathy [Unknown]
  - Ankylosing spondylitis [Unknown]
  - Upper respiratory tract infection [Unknown]
  - Upper respiratory tract infection [Unknown]
